FAERS Safety Report 8418482-7 (Version None)
Quarter: 2012Q2

REPORT INFORMATION
  Report Type: 
  Country: None (occurrence: None)
  Receive Date: 20120531
  Receipt Date: 20120524
  Transmission Date: 20120825
  Serious: Yes (Hospitalization)
  Sender: FDA-Public Use
  Company Number: 2012-2341

PATIENT
  Age: 61 Year
  Sex: Female

DRUGS (5)
  1. BOTULINUM TOXIN TYPE A [Suspect]
  2. DYSPORT [Suspect]
     Indication: SKIN WRINKLING
     Dosage: 4 UNITS (4 UNITS, SINGLE CYCLE), INTRAMUSCULAR, 56 UNITS (56 UNITS, SINGLE CYCLE), INTRAMUSCULAR
     Route: 030
     Dates: start: 20120127, end: 20120127
  3. DYSPORT [Suspect]
     Indication: OFF LABEL USE
     Dosage: 4 UNITS (4 UNITS, SINGLE CYCLE), INTRAMUSCULAR, 56 UNITS (56 UNITS, SINGLE CYCLE), INTRAMUSCULAR
     Route: 030
     Dates: start: 20120127, end: 20120127
  4. DYSPORT [Suspect]
     Indication: SKIN WRINKLING
     Dosage: 4 UNITS (4 UNITS, SINGLE CYCLE), INTRAMUSCULAR, 56 UNITS (56 UNITS, SINGLE CYCLE), INTRAMUSCULAR
     Route: 030
     Dates: start: 20120210, end: 20120210
  5. DYSPORT [Suspect]
     Indication: OFF LABEL USE
     Dosage: 4 UNITS (4 UNITS, SINGLE CYCLE), INTRAMUSCULAR, 56 UNITS (56 UNITS, SINGLE CYCLE), INTRAMUSCULAR
     Route: 030
     Dates: start: 20120210, end: 20120210

REACTIONS (2)
  - CELLULITIS [None]
  - TOOTH EXTRACTION [None]
